FAERS Safety Report 9601733 (Version 1)
Quarter: 2013Q4

REPORT INFORMATION
  Report Type: Spontaneous
  Country: US (occurrence: None)
  Receive Date: 20131004
  Receipt Date: 20131004
  Transmission Date: 20140711
  Serious: Yes (Life-Threatening)
  Sender: FDA-Public Use
  Company Number: None

PATIENT
  Age: 37 Year
  Sex: Female
  Weight: 70.31 kg

DRUGS (1)
  1. ADERRAL [Suspect]
     Indication: ATTENTION DEFICIT/HYPERACTIVITY DISORDER
     Dosage: 1 PILL
     Route: 048
     Dates: start: 20130914, end: 20130915

REACTIONS (6)
  - Palpitations [None]
  - Restlessness [None]
  - Abasia [None]
  - Dysstasia [None]
  - Product substitution issue [None]
  - Feeling abnormal [None]
